FAERS Safety Report 5575994-1 (Version None)
Quarter: 2007Q4

REPORT INFORMATION
  Report Type: 
  Country: None (occurrence: None)
  Receive Date: 20071228
  Receipt Date: 20071221
  Transmission Date: 20080405
  Serious: Yes (Other)
  Sender: FDA-Public Use
  Company Number: PHEH2007US11666

PATIENT
  Age: 62 Year
  Sex: Male
  Weight: 54.875 kg

DRUGS (3)
  1. GLEEVEC [Suspect]
     Indication: CHRONIC MYELOID LEUKAEMIA
     Dosage: 200 MG, UNK
  2. GLEEVEC [Suspect]
     Dosage: 400 MG, QD
     Route: 048
  3. GLEEVEC [Suspect]
     Dosage: 400 MG, QD
     Route: 048
     Dates: start: 20070801

REACTIONS (8)
  - ASTHENIA [None]
  - EYE HAEMORRHAGE [None]
  - FEELING ABNORMAL [None]
  - NAUSEA [None]
  - NOCTURIA [None]
  - OEDEMA PERIPHERAL [None]
  - POLYDIPSIA [None]
  - SWELLING FACE [None]
